FAERS Safety Report 4359249-9 (Version None)
Quarter: 2004Q2

REPORT INFORMATION
  Report Type: 
  Country: None (occurrence: None)
  Receive Date: 20040512
  Receipt Date: 20040428
  Transmission Date: 20050107
  Serious: Yes (Hospitalization, Other)
  Sender: FDA-Public Use
  Company Number: USA040466197

PATIENT
  Age: 58 Year
  Sex: Female
  Weight: 109 kg

DRUGS (2)
  1. HUMALOG [Suspect]
     Indication: DIABETES MELLITUS NON-INSULIN-DEPENDENT
     Dosage: 35 U/2 DAY
     Dates: start: 19990101
  2. GLUCOPHAGE [Concomitant]

REACTIONS (7)
  - BLOOD GLUCOSE INCREASED [None]
  - COLON CANCER [None]
  - CONSTIPATION [None]
  - DIZZINESS [None]
  - MEDICATION ERROR [None]
  - NAUSEA [None]
  - PHARMACEUTICAL PRODUCT COMPLAINT [None]
